FAERS Safety Report 8970055 (Version 1)
Quarter: 2012Q4

REPORT INFORMATION
  Report Type: 
  Country: CN (occurrence: CN)
  Receive Date: 20121217
  Receipt Date: 20121217
  Transmission Date: 20130627
  Serious: Yes (Other)
  Sender: FDA-Public Use
  Company Number: PHHY2012CN114107

PATIENT
  Sex: Male

DRUGS (1)
  1. REGITINE [Suspect]
     Indication: PNEUMONIA ASPIRATION
     Dosage: 0.3-0.5 mg/kg
     Route: 042
     Dates: start: 20090723, end: 20090723

REACTIONS (3)
  - Cyanosis [Recovering/Resolving]
  - Nasal obstruction [Recovering/Resolving]
  - Dyspnoea [Recovering/Resolving]
